FAERS Safety Report 10736314 (Version 1)
Quarter: 2015Q1

REPORT INFORMATION
  Report Type: Spontaneous
  Country: US (occurrence: None)
  Receive Date: 20150122
  Receipt Date: 20150122
  Transmission Date: 20150721
  Serious: No
  Sender: FDA-Public Use
  Company Number: None

PATIENT
  Age: 7 Year
  Sex: Female

DRUGS (1)
  1. TAMIFLU [Suspect]
     Active Substance: OSELTAMIVIR PHOSPHATE
     Indication: INFLUENZA
     Dosage: 2 TEASPOONFULS
     Dates: start: 20150110, end: 20150113

REACTIONS (4)
  - Vomiting [None]
  - Abdominal discomfort [None]
  - Muscle spasms [None]
  - Pain [None]

NARRATIVE: CASE EVENT DATE: 20150117
